FAERS Safety Report 5115853-1 (Version None)
Quarter: 2006Q3

REPORT INFORMATION
  Report Type: 
  Country: None (occurrence: None)
  Receive Date: 20060926
  Receipt Date: 20060926
  Transmission Date: 20061208
  Serious: Yes (Disabling, Other)
  Sender: FDA-Public Use
  Company Number: None

PATIENT
  Age: 40 Year
  Sex: Female
  Weight: 61.2356 kg

DRUGS (3)
  1. BC POWDER [Suspect]
     Dosage: 2 PACKETS   IN THE MORNING  ORALLY  (DURATION: PAST SEVERAL YEARS)
     Route: 048
  2. LITHIUM [Concomitant]
  3. XANAX [Concomitant]

REACTIONS (4)
  - COUGH [None]
  - DYSPNOEA [None]
  - HEADACHE [None]
  - PHARMACEUTICAL PRODUCT COMPLAINT [None]
